FAERS Safety Report 10914606 (Version 1)
Quarter: 2015Q1

REPORT INFORMATION
  Report Type: Spontaneous
  Country: US (occurrence: US)
  Receive Date: 20150313
  Receipt Date: 20150313
  Transmission Date: 20150721
  Serious: No
  Sender: FDA-Public Use
  Company Number: US-GLAXOSMITHKLINE-US2015029048

PATIENT
  Age: 72 Year
  Sex: Female

DRUGS (2)
  1. NICODERM CQ [Suspect]
     Active Substance: NICOTINE
     Route: 062
  2. NICORETTE [Suspect]
     Active Substance: NICOTINE
     Dosage: 4 MG, UNK
     Route: 002

REACTIONS (7)
  - Expired product administered [Recovered/Resolved]
  - Headache [Not Recovered/Not Resolved]
  - Application site irritation [Unknown]
  - Palpitations [Unknown]
  - Application site pruritus [Unknown]
  - Heart rate increased [Not Recovered/Not Resolved]
  - Application site reaction [Unknown]
